FAERS Safety Report 8721027 (Version 2)
Quarter: 2017Q1

REPORT INFORMATION
  Report Type: Report from Study
  Country: NL (occurrence: NL)
  Receive Date: 20120813
  Receipt Date: 20170330
  Transmission Date: 20170429
  Serious: Yes (Other)
  Sender: FDA-Public Use
  Company Number: PHHY2012NL068085

PATIENT
  Age: 75 Year
  Sex: Male

DRUGS (1)
  1. TOBI [Suspect]
     Active Substance: TOBRAMYCIN
     Indication: PRODUCT USED FOR UNKNOWN INDICATION
     Dosage: ACCORDING TO A 28 DAY SCHEDULE
     Route: 055

REACTIONS (5)
  - Cardiac disorder [Unknown]
  - Coagulopathy [Unknown]
  - Gait disturbance [Unknown]
  - Malaise [Unknown]
  - Device issue [Unknown]

NARRATIVE: CASE EVENT DATE: 20120419
